FAERS Safety Report 25685892 (Version 1)
Quarter: 2025Q3

REPORT INFORMATION
  Report Type: Spontaneous
  Country: EU (occurrence: EU)
  Receive Date: 20250815
  Receipt Date: 20250815
  Transmission Date: 20251021
  Serious: Yes (Hospitalization)
  Sender: NOVO NORDISK
  Company Number: EU-NOVOPROD-1495479

PATIENT
  Sex: Male

DRUGS (1)
  1. OZEMPIC [Suspect]
     Active Substance: SEMAGLUTIDE
     Indication: Product used for unknown indication

REACTIONS (4)
  - Abdominal pain [Unknown]
  - Diarrhoea [Unknown]
  - Gastrointestinal pain [Unknown]
  - Drug intolerance [Unknown]
